FAERS Safety Report 16881331 (Version 1)
Quarter: 2019Q4

REPORT INFORMATION
  Report Type: Spontaneous
  Country: US (occurrence: US)
  Receive Date: 20190807
  Receipt Date: 20190807
  Transmission Date: 20200122
  Serious: No
  Sender: FDA-Public Use
  Company Number: None

PATIENT
  Age: 0 Day
  Sex: Male

DRUGS (1)
  1. PHYTONADIONE. [Suspect]
     Active Substance: PHYTONADIONE
     Route: 042

REACTIONS (4)
  - Somnolence [None]
  - Jaundice [None]
  - Sleep disorder [None]
  - Crying [None]

NARRATIVE: CASE EVENT DATE: 20160827
